FAERS Safety Report 5320690-9 (Version None)
Quarter: 2007Q2

REPORT INFORMATION
  Report Type: 
  Country: None (occurrence: None)
  Receive Date: 20070502
  Receipt Date: 20070402
  Transmission Date: 20071010
  Serious: Yes (Hospitalization)
  Sender: FDA-Public Use
  Company Number: 20073750

PATIENT
  Age: 12 Year
  Sex: 0

DRUGS (1)
  1. LIORESAL [Suspect]
     Indication: MUSCLE SPASTICITY
     Dosage: 265 MCG, DAILY, INTRATHECAL
     Route: 037

REACTIONS (1)
  - SCOLIOSIS [None]
